FAERS Safety Report 9503795 (Version 5)
Quarter: 2014Q2

REPORT INFORMATION
  Report Type: Report from Study
  Country: JP (occurrence: JP)
  Receive Date: 20130906
  Receipt Date: 20140403
  Transmission Date: 20141212
  Serious: No
  Sender: FDA-Public Use
  Company Number: JP-JNJFOC-20130814298

PATIENT
  Age: 38 Year
  Sex: Male
  Weight: 87 kg

DRUGS (19)
  1. STELARA [Suspect]
     Indication: PSORIASIS
     Route: 058
     Dates: start: 20121106, end: 20121106
  2. STELARA [Suspect]
     Indication: PSORIASIS
     Route: 058
     Dates: start: 20131224
  3. STELARA [Suspect]
     Indication: PSORIASIS
     Route: 058
     Dates: start: 20130409, end: 20130409
  4. STELARA [Suspect]
     Indication: PSORIASIS
     Route: 058
     Dates: start: 20130702, end: 20130702
  5. STELARA [Suspect]
     Indication: PSORIASIS
     Route: 058
     Dates: start: 20130924, end: 20130924
  6. STELARA [Suspect]
     Indication: PSORIASIS
     Route: 058
     Dates: start: 20121204, end: 20121204
  7. OLMETEC [Concomitant]
     Indication: HYPERTENSION
     Route: 048
     Dates: start: 20121106
  8. FEBURIC [Concomitant]
     Indication: GOUT
     Route: 048
     Dates: start: 20120904, end: 20121105
  9. FEBURIC [Concomitant]
     Indication: GOUT
     Route: 048
     Dates: start: 20121106
  10. ATELEC [Concomitant]
     Indication: HYPERTENSION
     Route: 048
     Dates: start: 20120904
  11. AVAPRO [Concomitant]
     Indication: HYPERTENSION
     Route: 048
     Dates: start: 20120904, end: 20121105
  12. ALLELOCK [Concomitant]
     Indication: PSORIASIS
     Route: 048
     Dates: start: 20080902
  13. BONALFA [Concomitant]
     Indication: PSORIASIS
     Route: 061
     Dates: start: 20120904
  14. OXAROL [Concomitant]
     Indication: PSORIASIS
     Route: 061
     Dates: start: 20120904
  15. OXAROL [Concomitant]
     Indication: PSORIASIS
     Route: 061
     Dates: start: 20120925
  16. NERISONA [Concomitant]
     Indication: PSORIASIS
     Route: 061
     Dates: start: 20120925
  17. PROTOPIC [Concomitant]
     Indication: PSORIASIS
     Route: 061
     Dates: start: 20120925
  18. CRAVIT [Concomitant]
     Route: 048
     Dates: start: 20130123, end: 20130124
  19. NON-PYRINE COLD PREPARATION [Concomitant]
     Route: 048
     Dates: start: 20130123, end: 20130124

REACTIONS (3)
  - Cell marker increased [Recovering/Resolving]
  - Nasopharyngitis [Recovered/Resolved]
  - Molluscum contagiosum [Recovered/Resolved]
